FAERS Safety Report 9274973 (Version 1)
Quarter: 2013Q3

REPORT INFORMATION
  Report Type: Spontaneous
  Country: US (occurrence: None)
  Receive Date: 20130501
  Receipt Date: 20130501
  Transmission Date: 20140515
  Serious: Yes (Hospitalization)
  Sender: FDA-Public Use
  Company Number: None

PATIENT
  Age: 39 Year
  Sex: Male
  Weight: 68.04 kg

DRUGS (3)
  1. LURASIDONE [Suspect]
     Indication: SCHIZOAFFECTIVE DISORDER
     Route: 048
     Dates: start: 20121115
  2. LORAZEPAM [Concomitant]
  3. BUPROPRION [Concomitant]

REACTIONS (3)
  - Confusional state [None]
  - Psychotic disorder [None]
  - Suicidal ideation [None]
